FAERS Safety Report 17333150 (Version 4)
Quarter: 2020Q2

REPORT INFORMATION
  Report Type: Spontaneous
  Country: US (occurrence: US)
  Receive Date: 20200128
  Receipt Date: 20200507
  Transmission Date: 20200713
  Serious: Yes (Death, Hospitalization)
  Sender: FDA-Public Use
  Company Number: US-LEXICON PHARMACEUTICALS, INC-20-1606-00055

PATIENT
  Age: 75 Year
  Sex: Male

DRUGS (9)
  1. LOPERAMIDE [Concomitant]
     Active Substance: LOPERAMIDE
  2. TYLENOL EXTRA STRENGTH [Concomitant]
     Active Substance: ACETAMINOPHEN
  3. SODIUM CHLORIDE. [Concomitant]
     Active Substance: SODIUM CHLORIDE
  4. AFINITOR [Concomitant]
     Active Substance: EVEROLIMUS
  5. BUMETANIDE. [Concomitant]
     Active Substance: BUMETANIDE
  6. OCTREOTIDE. [Concomitant]
     Active Substance: OCTREOTIDE
  7. XERMELO [Suspect]
     Active Substance: TELOTRISTAT ETHYL
     Indication: NEUROENDOCRINE TUMOUR
     Dates: start: 20190208
  8. CARVEDILOL. [Concomitant]
     Active Substance: CARVEDILOL
  9. MIDODRINE HCL [Concomitant]
     Active Substance: MIDODRINE HYDROCHLORIDE

REACTIONS (2)
  - Catheterisation cardiac [Unknown]
  - Death [Fatal]
